FAERS Safety Report 11025478 (Version 1)
Quarter: 2015Q2

REPORT INFORMATION
  Report Type: Spontaneous
  Country: DE (occurrence: None)
  Receive Date: 20150410
  Receipt Date: 20150410
  Transmission Date: 20150821
  Serious: No
  Sender: FDA-Public Use
  Company Number: 1503DEU006330

PATIENT
  Age: 35 Year
  Sex: Male
  Weight: 85 kg

DRUGS (2)
  1. XYLOMETAZOLINE HYDROCHLORIDE [Concomitant]
     Active Substance: XYLOMETAZOLINE HYDROCHLORIDE
  2. KEIMAX (CEFTIBUTEN) CAPSULE, 400MG [Suspect]
     Active Substance: CEFTIBUTEN
     Indication: SINUSITIS
     Dosage: 400MG, TWICE A DAY, ORAL
     Route: 048
     Dates: start: 20150307, end: 20150311

REACTIONS (2)
  - Prescribed overdose [None]
  - No adverse event [None]

NARRATIVE: CASE EVENT DATE: 20150307
